FAERS Safety Report 9664392 (Version 1)
Quarter: 2013Q4

REPORT INFORMATION
  Report Type: Report from Study
  Country: US (occurrence: US)
  Receive Date: 20131101
  Receipt Date: 20131101
  Transmission Date: 20140711
  Serious: Yes (Other)
  Sender: FDA-Public Use
  Company Number: US-ROCHE-1296745

PATIENT
  Sex: Male

DRUGS (11)
  1. LUCENTIS [Suspect]
     Indication: DIABETIC RETINAL OEDEMA
     Route: 065
     Dates: start: 20131001, end: 20131001
  2. LUCENTIS [Suspect]
     Indication: DIABETIC RETINOPATHY
  3. METFORMIN HCL [Concomitant]
  4. GLIPIZIDE [Concomitant]
  5. PRAVASTATIN [Concomitant]
  6. AMITRIPTYLINE HCL [Concomitant]
  7. BACLOFEN [Concomitant]
  8. LOSARTAN [Concomitant]
  9. GABAPENTIN [Concomitant]
  10. NOVOLOG [Concomitant]
  11. HUMALOG [Concomitant]

REACTIONS (4)
  - Vitreous haemorrhage [Unknown]
  - Visual acuity reduced [Unknown]
  - Vitreous floaters [Unknown]
  - Photophobia [Unknown]
